FAERS Safety Report 26069309 (Version 1)
Quarter: 2025Q4

REPORT INFORMATION
  Report Type: Spontaneous
  Country: JP (occurrence: JP)
  Receive Date: 20251120
  Receipt Date: 20251120
  Transmission Date: 20260118
  Serious: Yes (Hospitalization, Other)
  Sender: BAUSCH AND LOMB
  Company Number: JP-BAUSCH-BH-2025-020446

PATIENT
  Age: 83 Year
  Sex: Male
  Weight: 66.5 kg

DRUGS (11)
  1. ACYCLOVIR [Suspect]
     Active Substance: ACYCLOVIR
     Indication: Herpes simplex encephalitis
     Dosage: 625?MG EVERY 12?H
     Route: 065
     Dates: start: 2024, end: 2024
  2. MEROPENEM [Suspect]
     Active Substance: MEROPENEM
     Indication: Herpes simplex encephalitis
     Dosage: 2?G EVERY 8?H
     Route: 065
     Dates: start: 2024
  3. VANCOMYCIN [Suspect]
     Active Substance: VANCOMYCIN
     Indication: Herpes simplex encephalitis
     Route: 065
     Dates: start: 2024
  4. ANAGLIPTIN [Concomitant]
     Active Substance: ANAGLIPTIN
     Indication: Type 2 diabetes mellitus
  5. METFORMIN [Concomitant]
     Active Substance: METFORMIN HYDROCHLORIDE
     Indication: Type 2 diabetes mellitus
  6. ATORVASTATIN [Concomitant]
     Active Substance: ATORVASTATIN
     Indication: Dyslipidaemia
  7. ESOMEPRAZOLE [Concomitant]
     Active Substance: ESOMEPRAZOLE
     Indication: Gastrooesophageal reflux disease
  8. TAMSULOSIN [Concomitant]
     Active Substance: TAMSULOSIN
     Indication: Benign prostatic hyperplasia
  9. CHLORMADINONE [Concomitant]
     Active Substance: CHLORMADINONE
     Indication: Benign prostatic hyperplasia
  10. ACETAMINOPHEN [Concomitant]
     Active Substance: ACETAMINOPHEN
     Indication: Heat illness
     Dates: start: 202407
  11. LEVOFLOXACIN [Concomitant]
     Active Substance: LEVOFLOXACIN
     Indication: Heat illness
     Dates: start: 202407

REACTIONS (2)
  - Toxic encephalopathy [Recovering/Resolving]
  - Acute kidney injury [Recovered/Resolved]

NARRATIVE: CASE EVENT DATE: 20240101
